FAERS Safety Report 9318397 (Version 1)
Quarter: 2013Q2

REPORT INFORMATION
  Report Type: Spontaneous
  Country: US (occurrence: US)
  Receive Date: 20130530
  Receipt Date: 20130530
  Transmission Date: 20140414
  Serious: No
  Sender: FDA-Public Use
  Company Number: US-NOVEN-13US006448

PATIENT
  Age: 12 Year
  Sex: Female

DRUGS (2)
  1. DAYTRANA [Suspect]
     Indication: ATTENTION DEFICIT/HYPERACTIVITY DISORDER
     Dosage: 30 MG, DURING WEEK
     Route: 062
     Dates: start: 201209, end: 20130308
  2. DAYTRANA [Suspect]
     Dosage: 15 MG, DURING THE WEEKEND
     Route: 062
     Dates: start: 201209, end: 20130308

REACTIONS (4)
  - Crying [Not Recovered/Not Resolved]
  - Hallucination, auditory [Not Recovered/Not Resolved]
  - Anger [Not Recovered/Not Resolved]
  - Mood swings [Not Recovered/Not Resolved]
